FAERS Safety Report 25074161 (Version 1)
Quarter: 2025Q1

REPORT INFORMATION
  Report Type: Spontaneous
  Country: IT (occurrence: IT)
  Receive Date: 20250313
  Receipt Date: 20250313
  Transmission Date: 20250409
  Serious: Yes (Other)
  Sender: HIKMA
  Company Number: None

PATIENT
  Age: 6 Year
  Sex: Female
  Weight: 18 kg

DRUGS (8)
  1. METHYLPREDNISOLONE [Suspect]
     Active Substance: METHYLPREDNISOLONE
     Indication: Febrile infection-related epilepsy syndrome
     Dosage: 540 MILLIGRAM, QD
     Route: 042
     Dates: start: 20250103, end: 20250115
  2. ANAKINRA [Concomitant]
     Active Substance: ANAKINRA
     Indication: Product used for unknown indication
     Route: 065
  3. PHENOBARBITAL [Concomitant]
     Active Substance: PHENOBARBITAL
     Indication: Product used for unknown indication
     Route: 065
  4. LACOSAMIDE [Concomitant]
     Active Substance: LACOSAMIDE
     Indication: Product used for unknown indication
     Route: 065
  5. MIDAZOLAM [Concomitant]
     Active Substance: MIDAZOLAM
     Indication: Product used for unknown indication
     Route: 065
  6. PROPOFOL [Concomitant]
     Active Substance: PROPOFOL
     Indication: Product used for unknown indication
     Route: 065
  7. THIOPENTAL SODIUM [Concomitant]
     Active Substance: THIOPENTAL SODIUM
     Indication: Product used for unknown indication
     Route: 065
  8. TOPIRAMATE [Concomitant]
     Active Substance: TOPIRAMATE
     Indication: Product used for unknown indication
     Route: 065

REACTIONS (2)
  - Hypothyroidism [Unknown]
  - Blood corticotrophin decreased [Recovered/Resolved]

NARRATIVE: CASE EVENT DATE: 20250114
